FAERS Safety Report 8328642-1 (Version None)
Quarter: 2012Q2

REPORT INFORMATION
  Report Type: 
  Country: None (occurrence: None)
  Receive Date: 20120502
  Receipt Date: 20120425
  Transmission Date: 20120825
  Serious: Yes (Hospitalization)
  Sender: FDA-Public Use
  Company Number: US-CELGENEUS-163-21880-12041379

PATIENT
  Sex: Female

DRUGS (8)
  1. IRON [Concomitant]
     Route: 065
  2. MEGACE ES [Concomitant]
     Route: 065
  3. SODIUM CHLORIDE [Concomitant]
     Route: 065
  4. SYNTHROID [Concomitant]
     Route: 065
  5. DEXAMETHASONE [Concomitant]
     Route: 065
  6. PLAVIX [Concomitant]
     Route: 065
  7. REVLIMID [Suspect]
     Indication: MULTIPLE MYELOMA
     Dosage: 15 MILLIGRAM
     Route: 048
     Dates: start: 20111114
  8. LOPRESSOR [Concomitant]
     Route: 065

REACTIONS (1)
  - FLUID RETENTION [None]
